FAERS Safety Report 9846052 (Version 2)
Quarter: 2014Q2

REPORT INFORMATION
  Report Type: Spontaneous
  Country: US (occurrence: US)
  Receive Date: 20140127
  Receipt Date: 20140521
  Transmission Date: 20141212
  Serious: Yes (Other)
  Sender: FDA-Public Use
  Company Number: PHEH2014US001420

PATIENT
  Sex: Female

DRUGS (4)
  1. HYDROCHLOROTHIAZIDE,VALSARTAN [Suspect]
     Dosage: 1 DF, UNK (VALS 320 MG, HYDR 25 MG)
  2. SYNTHROID [Concomitant]
     Dosage: UNK UKN, UNK
  3. EFFEXOR [Concomitant]
     Dosage: UNK UKN, UNK
  4. PREMARIN [Concomitant]
     Dosage: UNK UKN, UNK

REACTIONS (1)
  - Blood pressure increased [Unknown]
